FAERS Safety Report 7396128-7 (Version None)
Quarter: 2011Q2

REPORT INFORMATION
  Report Type: 
  Country: None (occurrence: None)
  Receive Date: 20110406
  Receipt Date: 20110331
  Transmission Date: 20111010
  Serious: Yes (Other)
  Sender: FDA-Public Use
  Company Number: US-SP-2011-02007

PATIENT
  Sex: Female

DRUGS (1)
  1. THERACYS [Suspect]
     Indication: ACCIDENTAL EXPOSURE
     Route: 065
     Dates: start: 20091001, end: 20091001

REACTIONS (3)
  - ATYPICAL MYCOBACTERIUM TEST POSITIVE [None]
  - EYE PAIN [None]
  - ACID FAST BACILLI INFECTION [None]
